FAERS Safety Report 5891404-9 (Version None)
Quarter: 2008Q3

REPORT INFORMATION
  Report Type: 
  Country: None (occurrence: None)
  Receive Date: 20080922
  Receipt Date: 20080918
  Transmission Date: 20090109
  Serious: Yes (Life-Threatening, Hospitalization, Other)
  Sender: FDA-Public Use
  Company Number: US-MERCK-0808USA02476

PATIENT
  Age: 70 Year
  Sex: Male
  Weight: 55 kg

DRUGS (5)
  1. JANUVIA [Suspect]
     Indication: TYPE 2 DIABETES MELLITUS
     Route: 048
     Dates: start: 20080731, end: 20080801
  2. LEVAQUIN [Concomitant]
     Route: 065
  3. AMARYL [Concomitant]
     Route: 048
  4. METFORMIN [Concomitant]
     Route: 048
  5. BIAXIN [Concomitant]
     Route: 065

REACTIONS (2)
  - DRUG INTERACTION [None]
  - HYPOGLYCAEMIA [None]
